FAERS Safety Report 4616735-1 (Version None)
Quarter: 2005Q1

REPORT INFORMATION
  Report Type: 
  Country: None (occurrence: None)
  Receive Date: 20050321
  Receipt Date: 20050309
  Transmission Date: 20050727
  Serious: Yes (Life-Threatening, Other)
  Sender: FDA-Public Use
  Company Number: JP-2005-002509

PATIENT
  Age: 76 Year
  Sex: Male

DRUGS (1)
  1. PROSCOPE   300        (IOPROMIDE) [Suspect]
     Indication: COMPUTERISED TOMOGRAM
     Dosage: 40 ML, 1 DOSE, INTRAVENOUS
     Route: 042
     Dates: start: 20050217, end: 20050217

REACTIONS (8)
  - BLOOD PRESSURE DECREASED [None]
  - COLD SWEAT [None]
  - CONTRAST MEDIA REACTION [None]
  - DEPRESSED LEVEL OF CONSCIOUSNESS [None]
  - DYSPHORIA [None]
  - FEELING ABNORMAL [None]
  - PULSE ABSENT [None]
  - SHOCK [None]
